FAERS Safety Report 14385622 (Version 1)
Quarter: 2018Q1

REPORT INFORMATION
  Report Type: Spontaneous
  Country: US (occurrence: US)
  Receive Date: 20180115
  Receipt Date: 20180115
  Transmission Date: 20180509
  Serious: Yes (Other)
  Sender: FDA-Public Use
  Company Number: US-SA-2017SA005654

PATIENT
  Age: 62 Year
  Sex: Female
  Weight: 65.77 kg

DRUGS (32)
  1. PROAIR HFA [Concomitant]
     Active Substance: ALBUTEROL SULFATE
     Route: 065
     Dates: start: 2006, end: 2012
  2. ZEMPLAR [Concomitant]
     Active Substance: PARICALCITOL
     Route: 065
     Dates: start: 2006, end: 2012
  3. BENZONATATE. [Concomitant]
     Active Substance: BENZONATATE
     Route: 065
     Dates: start: 2006, end: 2012
  4. CARAFATE [Concomitant]
     Active Substance: SUCRALFATE
     Route: 065
     Dates: start: 2006, end: 2012
  5. CEPHALEXIN. [Concomitant]
     Active Substance: CEPHALEXIN
     Route: 065
     Dates: start: 2006, end: 2012
  6. HOMATROPINE/HYDROCODONE [Concomitant]
  7. NEOSAR [Concomitant]
     Active Substance: CYCLOPHOSPHAMIDE
     Route: 042
  8. PROPOXYPHENE. [Concomitant]
     Active Substance: PROPOXYPHENE
     Route: 065
     Dates: start: 2006, end: 2012
  9. EFFEXOR [Concomitant]
     Active Substance: VENLAFAXINE HYDROCHLORIDE
     Route: 065
     Dates: start: 2006, end: 2012
  10. PLAVIX [Concomitant]
     Active Substance: CLOPIDOGREL BISULFATE
     Route: 065
     Dates: start: 2006, end: 20170323
  11. LEVOTHYROXINE. [Concomitant]
     Active Substance: LEVOTHYROXINE
     Indication: THYROID DISORDER
     Route: 065
     Dates: start: 1972, end: 2017
  12. CHLORDIAZEPOXIDE. [Concomitant]
     Active Substance: CHLORDIAZEPOXIDE
     Route: 065
     Dates: start: 2006, end: 2012
  13. FLUCONAZOLE. [Concomitant]
     Active Substance: FLUCONAZOLE
     Route: 065
     Dates: start: 2006, end: 2012
  14. ONDANSETRON [Concomitant]
     Active Substance: ONDANSETRON
     Route: 065
     Dates: start: 2006, end: 2012
  15. PROCHLORPERAZINE. [Concomitant]
     Active Substance: PROCHLORPERAZINE
     Route: 065
     Dates: start: 2006, end: 2012
  16. TAXOTERE [Suspect]
     Active Substance: DOCETAXEL
     Indication: BREAST CANCER FEMALE
     Route: 051
     Dates: start: 20090930, end: 20090930
  17. CEFDINIR. [Concomitant]
     Active Substance: CEFDINIR
     Route: 065
     Dates: start: 2006, end: 2012
  18. DOXYCYCLINE. [Concomitant]
     Active Substance: DOXYCYCLINE
     Route: 042
     Dates: start: 2006, end: 2012
  19. NEXIUM [Concomitant]
     Active Substance: ESOMEPRAZOLE MAGNESIUM
     Route: 065
     Dates: start: 2006, end: 2012
  20. DEXAMETHASONE. [Concomitant]
     Active Substance: DEXAMETHASONE
     Route: 065
     Dates: start: 2006, end: 2012
  21. LEVSIN [Concomitant]
     Active Substance: HYOSCYAMINE SULFATE
     Route: 065
     Dates: start: 2006, end: 2012
  22. METOPROLOL. [Concomitant]
     Active Substance: METOPROLOL
  23. HYOSCYAMINE. [Concomitant]
     Active Substance: HYOSCYAMINE
     Route: 065
     Dates: start: 2006, end: 2012
  24. ALPRAZOLAM. [Concomitant]
     Active Substance: ALPRAZOLAM
     Route: 065
     Dates: start: 2006, end: 2012
  25. AZITHROMYCIN ANHYDROUS. [Concomitant]
     Active Substance: AZITHROMYCIN ANHYDROUS
     Route: 065
     Dates: start: 2006, end: 2012
  26. AMOXICILLIN. [Concomitant]
     Active Substance: AMOXICILLIN
     Route: 065
     Dates: start: 2006, end: 2012
  27. LUNESTA [Concomitant]
     Active Substance: ESZOPICLONE
     Route: 065
     Dates: start: 2006, end: 2012
  28. PANTOPRAZOLE [Concomitant]
     Active Substance: PANTOPRAZOLE
     Route: 065
     Dates: start: 2006, end: 2012
  29. TAXOTERE [Suspect]
     Active Substance: DOCETAXEL
     Indication: BREAST CANCER FEMALE
     Route: 051
     Dates: start: 200906, end: 200906
  30. SOD AMIDOTRIZOATE W/MEGLUMINE AMIDOTRIZOATE [Concomitant]
     Route: 065
     Dates: start: 2006, end: 2012
  31. METHYLPREDNISOLONE. [Concomitant]
     Active Substance: METHYLPREDNISOLONE
     Route: 065
     Dates: start: 2006, end: 2012
  32. BABY ASPIRIN [Concomitant]
     Active Substance: ASPIRIN
     Route: 065
     Dates: start: 2006, end: 2012

REACTIONS (6)
  - Psychological trauma [Unknown]
  - Pain [Unknown]
  - Emotional distress [Unknown]
  - Alopecia [Not Recovered/Not Resolved]
  - Anxiety [Unknown]
  - Impaired quality of life [Unknown]

NARRATIVE: CASE EVENT DATE: 200906
